FAERS Safety Report 5601407-7 (Version None)
Quarter: 2007Q4

REPORT INFORMATION
  Report Type: 
  Country: None (occurrence: None)
  Receive Date: 20071226
  Receipt Date: 20070222
  Transmission Date: 20080405
  Serious: Yes (Hospitalization)
  Sender: FDA-Public Use
  Company Number: 235601

PATIENT
  Age: 66 Year
  Sex: Female
  Weight: 49.9 kg

DRUGS (17)
  1. RAPTIVA [Suspect]
     Indication: PSORIASIS
     Dosage: 0.5 ML, 1/WEEK, SUBCUTANEOUS
     Route: 058
     Dates: start: 20061207, end: 20070112
  2. TOPICAL MEDICATION (GENERIC COMPONENT(S) NOT KNOWN) [Concomitant]
  3. BACLOFEN [Concomitant]
  4. ROBAFEN DM (DEXTROMETHORPHAN HYDROBROMIDE, GUAIFENESIN) [Concomitant]
  5. CIPRO [Concomitant]
  6. PREMARIN [Concomitant]
  7. PRENDISONE (PREDNISONE) [Concomitant]
  8. UNITHROID (LEVOTHYROXINE SODIUM) [Concomitant]
  9. NEXIUM [Concomitant]
  10. CLONAZEPAM [Concomitant]
  11. SPIRIVA [Concomitant]
  12. ADVAIR DISKUS 100/50 [Concomitant]
  13. ZOLOFT [Concomitant]
  14. MULTIVITAMIN (MULTIVITAMINS NOS) [Concomitant]
  15. CALCIUM (CALCIUM NOS) [Concomitant]
  16. FISH OIL (FISH OIL) [Concomitant]
  17. ASPIRIN [Concomitant]

REACTIONS (2)
  - CONTUSION [None]
  - PNEUMONIA [None]
